FAERS Safety Report 14088951 (Version 5)
Quarter: 2020Q4

REPORT INFORMATION
  Report Type: Spontaneous
  Country: RO (occurrence: RO)
  Receive Date: 20171013
  Receipt Date: 20201021
  Transmission Date: 20210113
  Serious: Yes (Congenital Anomaly, Other)
  Sender: FDA-Public Use
  Company Number: PHHY2017RO148796

PATIENT
  Sex: Male
  Weight: 3 kg

DRUGS (5)
  1. VIRAMUNE [Suspect]
     Active Substance: NEVIRAPINE
     Indication: FOETAL EXPOSURE DURING PREGNANCY
     Dosage: MATERNAL DOSE 400 MG, QD
     Route: 064
  2. PENICILLIN V POTASSIUM. [Suspect]
     Active Substance: PENICILLIN V POTASSIUM
     Indication: FOETAL EXPOSURE DURING PREGNANCY
     Dosage: MATERNAL DOSE - UNK
     Route: 064
  3. COMBIVIR [Suspect]
     Active Substance: LAMIVUDINE\ZIDOVUDINE
     Dosage: PEDIATRIC FORMULATION
     Route: 064
  4. COMBIVIR [Suspect]
     Active Substance: LAMIVUDINE\ZIDOVUDINE
     Dosage: 900 MG, QD (MATERNAL DOSE)
     Route: 064
  5. COMBIVIR [Suspect]
     Active Substance: LAMIVUDINE\ZIDOVUDINE
     Indication: FOETAL EXPOSURE DURING PREGNANCY
     Dosage: MATERNAL DOSE: ZIDOVUDINE (300 MG BID, ORAL) LAMIVUDINE (150 MG BID, ORAL)
     Route: 064

REACTIONS (14)
  - Cerebral cyst [Unknown]
  - Ataxia [Unknown]
  - Cerebellar hypoplasia [Unknown]
  - Dandy-Walker syndrome [Unknown]
  - Speech disorder developmental [Unknown]
  - Developmental delay [Unknown]
  - Cyst [Unknown]
  - Attention deficit hyperactivity disorder [Unknown]
  - Macrocephaly [Unknown]
  - Neurodevelopmental disorder [Unknown]
  - Congenital central nervous system anomaly [Unknown]
  - Premature baby [Unknown]
  - Foetal exposure during pregnancy [Unknown]
  - Ventricular enlargement [Unknown]

NARRATIVE: CASE EVENT DATE: 20110305
